FAERS Safety Report 11009928 (Version 1)
Quarter: 2015Q2

REPORT INFORMATION
  Report Type: Spontaneous
  Country: DK (occurrence: DK)
  Receive Date: 20150410
  Receipt Date: 20150410
  Transmission Date: 20150821
  Serious: Yes (Death)
  Sender: FDA-Public Use
  Company Number: DK-BAXTER-2015BAX019021

PATIENT
  Sex: Male

DRUGS (2)
  1. EXTRANEAL [Suspect]
     Active Substance: CALCIUM CHLORIDE\ICODEXTRIN\MAGNESIUM CHLORIDE\SODIUM CHLORIDE\SODIUM LACTATE
     Indication: PERITONEAL DIALYSIS
     Route: 033
     Dates: end: 20150330
  2. PHYSIONEAL 40 GLUCOSE 2,27 % W/V/22,7 MG/ML CLEAR-FLEX [Suspect]
     Active Substance: DEXTROSE\SODIUM BICARBONATE\SODIUM CHLORIDE\SODIUM LACTATE
     Indication: PERITONEAL DIALYSIS
     Route: 033
     Dates: end: 20150330

REACTIONS (1)
  - Death [Fatal]

NARRATIVE: CASE EVENT DATE: 20150330
